FAERS Safety Report 6103029-0 (Version None)
Quarter: 2009Q1

REPORT INFORMATION
  Report Type: 
  Country: None (occurrence: None)
  Receive Date: 20090305
  Receipt Date: 20090304
  Transmission Date: 20090719
  Serious: Yes (Hospitalization)
  Sender: FDA-Public Use
  Company Number: PHHO2007US15520

PATIENT
  Sex: Male
  Weight: 137.1 kg

DRUGS (7)
  1. LOTREL [Suspect]
     Indication: HYPERTENSION
     Dosage: LEVEL 1
     Route: 048
     Dates: start: 20040601, end: 20040628
  2. LOTREL [Suspect]
     Dosage: LEVEL 2
     Route: 048
     Dates: start: 20040629, end: 20040818
  3. LOTREL [Suspect]
     Dosage: LEVEL 3
     Route: 048
     Dates: start: 20040819, end: 20060110
  4. LOTREL [Suspect]
     Dosage: NO TREATMENT
     Dates: start: 20060111, end: 20060112
  5. LOTREL [Suspect]
     Dosage: LEVEL 3
     Route: 048
     Dates: start: 20060113, end: 20070915
  6. COREG [Concomitant]
     Indication: CORONARY ARTERY DISEASE
  7. HYDRALAZINE HCL [Concomitant]
     Indication: HYPERTENSION

REACTIONS (5)
  - ASTHENIA [None]
  - BACK PAIN [None]
  - GAIT DISTURBANCE [None]
  - SINUS BRADYCARDIA [None]
  - SYNCOPE [None]
